FAERS Safety Report 5628256-8 (Version None)
Quarter: 2008Q1

REPORT INFORMATION
  Report Type: 
  Country: None (occurrence: None)
  Receive Date: 20080215
  Receipt Date: 20080206
  Transmission Date: 20080703
  Serious: Yes (Other)
  Sender: FDA-Public Use
  Company Number: SE-PFIZER INC-2007083511

PATIENT
  Sex: Female

DRUGS (2)
  1. ZELDOX (CAPSULES) [Suspect]
     Indication: PSYCHOTIC DISORDER
     Route: 048
     Dates: start: 20060419, end: 20070828
  2. FLUOXETINE HCL [Suspect]
     Indication: DEPRESSION
     Dosage: DAILY DOSE:20MG-FREQ:DAILY
     Dates: start: 20060701, end: 20070629

REACTIONS (6)
  - DISABILITY [None]
  - MUSCLE SPASMS [None]
  - NECK PAIN [None]
  - TARDIVE DYSKINESIA [None]
  - TONGUE DISORDER [None]
  - VOMITING [None]
